FAERS Safety Report 4746763-7 (Version None)
Quarter: 2005Q3

REPORT INFORMATION
  Report Type: 
  Country: None (occurrence: None)
  Receive Date: 20050817
  Receipt Date: 20050805
  Transmission Date: 20060218
  Serious: Yes (Other)
  Sender: FDA-Public Use
  Company Number: 2005UW11686

PATIENT
  Age: 57 Year
  Sex: Female

DRUGS (5)
  1. CRESTOR [Suspect]
     Route: 048
  2. APO-HYDROXYQUINE [Concomitant]
  3. NEXIUM [Concomitant]
     Route: 048
  4. NOVO-DIFENAC SR [Concomitant]
  5. SYNTHROID [Concomitant]

REACTIONS (3)
  - ARTHRALGIA [None]
  - ARTHRITIS [None]
  - SYNOVITIS [None]
